FAERS Safety Report 7673858-0 (Version None)
Quarter: 2011Q3

REPORT INFORMATION
  Report Type: 
  Country: None (occurrence: None)
  Receive Date: 20110810
  Receipt Date: 20110801
  Transmission Date: 20111222
  Serious: Yes (Disabling, Other)
  Sender: FDA-Public Use
  Company Number: US-US-EMD SERONO, INC.-7074674

PATIENT
  Sex: Female

DRUGS (3)
  1. REBIF [Suspect]
     Indication: MULTIPLE SCLEROSIS
     Route: 058
     Dates: start: 20110530
  2. BACLOFEN [Concomitant]
     Indication: MUSCLE SPASTICITY
  3. DIOVAN HCT [Concomitant]
     Indication: AUTOMATIC BLADDER
     Dosage: 160/25 MG

REACTIONS (6)
  - HYPERTENSION [None]
  - OEDEMA PERIPHERAL [None]
  - FEELING ABNORMAL [None]
  - BACK PAIN [None]
  - RENAL DISORDER [None]
  - NIGHT BLINDNESS [None]
